FAERS Safety Report 7722832-4 (Version None)
Quarter: 2011Q3

REPORT INFORMATION
  Report Type: 
  Country: None (occurrence: None)
  Receive Date: 20110901
  Receipt Date: 20110825
  Transmission Date: 20111222
  Serious: No
  Sender: FDA-Public Use
  Company Number: US-BIOGENIDEC-2011BI014371

PATIENT
  Age: 54 Year
  Sex: Female

DRUGS (1)
  1. TYSABRI [Suspect]
     Indication: MULTIPLE SCLEROSIS
     Route: 042
     Dates: start: 20081021, end: 20110819

REACTIONS (5)
  - EXOSTOSIS [None]
  - SINUS CONGESTION [None]
  - LYMPHOEDEMA [None]
  - PROGRESSIVE MULTIPLE SCLEROSIS [None]
  - DEPRESSED MOOD [None]
